FAERS Safety Report 8972507 (Version 1)
Quarter: 2012Q4

REPORT INFORMATION
  Report Type: Spontaneous
  Country: US (occurrence: None)
  Receive Date: 20121217
  Receipt Date: 20121217
  Transmission Date: 20130627
  Serious: Yes (Other)
  Sender: FDA-Public Use
  Company Number: None

PATIENT
  Age: 12 Year
  Sex: Female
  Weight: 42.64 kg

DRUGS (1)
  1. TAMIFLU 75 MG ROCHE [Suspect]
     Indication: INFLUENZA
     Dosage: 75 mg Twice daily po
     Route: 048
     Dates: start: 20121212, end: 20121212

REACTIONS (5)
  - Hallucinations, mixed [None]
  - Nightmare [None]
  - Panic attack [None]
  - Fear [None]
  - Anxiety [None]
